FAERS Safety Report 24395848 (Version 1)
Quarter: 2024Q4

REPORT INFORMATION
  Report Type: Spontaneous
  Country: CN (occurrence: CN)
  Receive Date: 20241004
  Receipt Date: 20241004
  Transmission Date: 20250115
  Serious: Yes (Other)
  Sender: ROCHE
  Company Number: CN-ROCHE-10000094529

PATIENT
  Age: 73 Year
  Sex: Male

DRUGS (2)
  1. ACTEMRA [Suspect]
     Active Substance: TOCILIZUMAB
     Indication: Schnitzler^s syndrome
     Dosage: 6 BOTTLES
     Route: 065
  2. ACTEMRA [Suspect]
     Active Substance: TOCILIZUMAB
     Dosage: 7 BOTTLES
     Route: 065
     Dates: start: 20240827

REACTIONS (2)
  - Anaphylactic shock [Unknown]
  - Off label use [Unknown]

NARRATIVE: CASE EVENT DATE: 20240930
